FAERS Safety Report 22128859 (Version 2)
Quarter: 2023Q2

REPORT INFORMATION
  Report Type: Spontaneous
  Country: US (occurrence: US)
  Receive Date: 20230323
  Receipt Date: 20230517
  Transmission Date: 20230722
  Serious: No
  Sender: FDA-Public Use
  Company Number: US-BRISTOL-MYERS SQUIBB COMPANY-2023-041544

PATIENT
  Age: 70 Year
  Sex: Female
  Weight: 53.97 kg

DRUGS (1)
  1. REVLIMID [Suspect]
     Active Substance: LENALIDOMIDE
     Indication: Plasma cell myeloma
     Dosage: DAILY X 21 DAYS ON AND 7 DAYS OF
     Route: 048
     Dates: start: 20220120

REACTIONS (2)
  - Coronavirus infection [Recovered/Resolved]
  - Dry skin [Not Recovered/Not Resolved]
